FAERS Safety Report 23842481 (Version 1)
Quarter: 2024Q2

REPORT INFORMATION
  Report Type: Spontaneous
  Country: CN (occurrence: CN)
  Receive Date: 20240510
  Receipt Date: 20240510
  Transmission Date: 20240716
  Serious: Yes (Other)
  Sender: FDA-Public Use
  Company Number: CN-SHANGHAI JUNSHI BIOSCIENCES CO., LTD.-CN2024009969

PATIENT

DRUGS (6)
  1. TORIPALIMAB [Suspect]
     Active Substance: TORIPALIMAB
     Indication: Malignant melanoma
     Dosage: 240 MG
     Route: 041
     Dates: start: 20240320, end: 20240320
  2. TORIPALIMAB [Suspect]
     Active Substance: TORIPALIMAB
     Dosage: 240 MG
     Route: 041
     Dates: start: 20240416, end: 20240416
  3. PACLITAXEL [Suspect]
     Active Substance: PACLITAXEL
     Indication: Malignant melanoma
     Dosage: 360 MG
     Route: 041
     Dates: start: 20240320, end: 20240320
  4. PACLITAXEL [Suspect]
     Active Substance: PACLITAXEL
     Dosage: 310 MG
     Route: 041
     Dates: start: 20240416, end: 20240416
  5. NEDAPLATIN [Suspect]
     Active Substance: NEDAPLATIN
     Indication: Malignant melanoma
     Dosage: 110 MG
     Route: 041
     Dates: start: 20240320, end: 20240320
  6. NEDAPLATIN [Suspect]
     Active Substance: NEDAPLATIN
     Dosage: 100 MG
     Route: 041
     Dates: start: 20240416, end: 20240416

REACTIONS (2)
  - Febrile neutropenia [Recovering/Resolving]
  - Off label use [Unknown]

NARRATIVE: CASE EVENT DATE: 20240320
